FAERS Safety Report 6797752-2 (Version None)
Quarter: 2010Q2

REPORT INFORMATION
  Report Type: 
  Country: None (occurrence: None)
  Receive Date: 20100623
  Receipt Date: 20100611
  Transmission Date: 20101027
  Serious: Yes (Other)
  Sender: FDA-Public Use
  Company Number: 7005461

PATIENT
  Age: 61 Year
  Sex: Male

DRUGS (3)
  1. REBIF [Suspect]
     Indication: MULTIPLE SCLEROSIS
     Dosage: 44 MCG, 3 IN 1 WK, SUBCUTANEOUS
     Route: 058
     Dates: start: 20091210
  2. MOTRIN [Concomitant]
  3. BACLOFEN [Concomitant]

REACTIONS (6)
  - CARDIAC DISORDER [None]
  - DISEASE RECURRENCE [None]
  - FATIGUE [None]
  - INJECTION SITE ERYTHEMA [None]
  - NUCLEAR MAGNETIC RESONANCE IMAGING ABNORMAL [None]
  - OPTIC NEURITIS [None]
